FAERS Safety Report 5038085-4 (Version None)
Quarter: 2006Q2

REPORT INFORMATION
  Report Type: 
  Country: None (occurrence: None)
  Receive Date: 20060602
  Receipt Date: 20051202
  Transmission Date: 20061013
  Serious: Yes (Hospitalization)
  Sender: FDA-Public Use
  Company Number: 2005-12-0155

PATIENT
  Age: 61 Year
  Sex: Male
  Weight: 78.4723 kg

DRUGS (8)
  1. NITRO-DUR [Suspect]
     Dosage: TRANSDERMAL
     Route: 062
     Dates: start: 19990101
  2. IMDUR [Concomitant]
  3. NITRO-DUR [Concomitant]
  4. NIASPAN [Concomitant]
  5. NORVASC [Concomitant]
  6. ZOCOR [Concomitant]
  7. TOPROL-XL [Concomitant]
  8. MAVIK [Concomitant]

REACTIONS (4)
  - APPLICATION SITE EXCORIATION [None]
  - HEADACHE [None]
  - HYPERSENSITIVITY [None]
  - NAUSEA [None]
